FAERS Safety Report 9496765 (Version 2)
Quarter: 2013Q3

REPORT INFORMATION
  Report Type: Spontaneous
  Country: FR (occurrence: FR)
  Receive Date: 20130904
  Receipt Date: 20130904
  Transmission Date: 20140515
  Serious: Yes (Other)
  Sender: FDA-Public Use
  Company Number: FR-PFIZER INC-2013253662

PATIENT
  Age: 65 Year
  Sex: Female

DRUGS (1)
  1. CORDARONE [Suspect]
     Dosage: UNK
     Route: 048

REACTIONS (1)
  - Thyroid disorder [Not Recovered/Not Resolved]
